FAERS Safety Report 7361207-7 (Version None)
Quarter: 2011Q1

REPORT INFORMATION
  Report Type: 
  Country: None (occurrence: None)
  Receive Date: 20110318
  Receipt Date: 20110304
  Transmission Date: 20110831
  Serious: Yes (Other)
  Sender: FDA-Public Use
  Company Number: PHHY2011ES18352

PATIENT
  Age: 70 Year
  Sex: Female

DRUGS (1)
  1. ZOLEDRONIC ACID [Suspect]
     Indication: OSTEITIS DEFORMANS
     Route: 042

REACTIONS (8)
  - OPHTHALMOPLEGIA [None]
  - EYE PAIN [None]
  - PAROPHTHALMIA [None]
  - OCULAR HYPERAEMIA [None]
  - CONJUNCTIVAL OEDEMA [None]
  - EXOPHTHALMOS [None]
  - EYELID OEDEMA [None]
  - EYE SWELLING [None]
